FAERS Safety Report 9159049 (Version 1)
Quarter: 2013Q1

REPORT INFORMATION
  Report Type: Spontaneous
  Country: US (occurrence: None)
  Receive Date: 20130211
  Receipt Date: 20130211
  Transmission Date: 20140127
  Serious: Yes (Other)
  Sender: FDA-Public Use
  Company Number: ACO_34067_2013

PATIENT
  Age: 50 Year
  Sex: Female

DRUGS (5)
  1. AMPYRA [Suspect]
     Indication: GAIT DISTURBANCE
     Route: 048
     Dates: start: 201301
  2. AVONEX (INTERFERON BETA-1A) [Concomitant]
  3. BYSTOLIC (NEBIVOLOL HYDROCHLORIDE) [Concomitant]
  4. TEKTUMA (ALISKIREN FUMARATE) [Concomitant]
  5. SPIRONOLACTONE (SPIRONOLACTONE) [Concomitant]

REACTIONS (8)
  - Angioedema [None]
  - Rash [None]
  - Burning sensation [None]
  - Skin tightness [None]
  - Erythema [None]
  - Pruritus [None]
  - Lip swelling [None]
  - Food allergy [None]
